FAERS Safety Report 5835138-5 (Version None)
Quarter: 2008Q3

REPORT INFORMATION
  Report Type: 
  Country: None (occurrence: None)
  Receive Date: 20080806
  Receipt Date: 20080725
  Transmission Date: 20090109
  Serious: Yes (Hospitalization)
  Sender: FDA-Public Use
  Company Number: GB-AMGEN-UK226321

PATIENT
  Sex: Female

DRUGS (17)
  1. PANITUMUMAB [Suspect]
     Indication: COLORECTAL CANCER
     Route: 042
     Dates: start: 20070326
  2. FLUOROURACIL [Concomitant]
  3. LEUCOVORIN CALCIUM [Concomitant]
  4. OXALIPLATIN [Concomitant]
  5. CO-CODAMOL [Concomitant]
     Route: 048
     Dates: start: 20070226
  6. LACTULOSE [Concomitant]
     Route: 048
     Dates: start: 20070226
  7. SENNA [Concomitant]
     Route: 048
     Dates: start: 20070226
  8. ASPIRIN [Concomitant]
     Route: 048
  9. BENDROFLUAZIDE [Concomitant]
     Route: 048
     Dates: start: 20020101
  10. ATORVASTATIN [Concomitant]
     Route: 048
     Dates: start: 20020101
  11. TRAMADOL HCL [Concomitant]
     Route: 048
     Dates: start: 20070101
  12. ESTRADERM [Concomitant]
     Route: 061
     Dates: start: 20070101
  13. OXYTETRACYCLINE [Concomitant]
     Route: 048
     Dates: start: 20070405, end: 20070508
  14. OXYTETRACYCLINE [Concomitant]
     Route: 048
     Dates: start: 20070509
  15. DOMPERIDONE [Concomitant]
     Route: 048
     Dates: start: 20070326
  16. DEXAMETHASONE [Concomitant]
     Route: 048
     Dates: start: 20070326
  17. POTASSIUM CHLORIDE [Concomitant]
     Route: 048
     Dates: start: 20070102

REACTIONS (2)
  - RASH [None]
  - SWELLING FACE [None]
